FAERS Safety Report 19754498 (Version 1)
Quarter: 2021Q3

REPORT INFORMATION
  Report Type: Report from Study
  Country: US (occurrence: US)
  Receive Date: 20210827
  Receipt Date: 20210827
  Transmission Date: 20211014
  Serious: No
  Sender: FDA-Public Use
  Company Number: US-BIOVITRUM-2021US7787

PATIENT
  Sex: Female

DRUGS (1)
  1. KINERET [Suspect]
     Active Substance: ANAKINRA
     Indication: PRODUCT USED FOR UNKNOWN INDICATION
     Route: 058
     Dates: start: 20210730

REACTIONS (11)
  - Injection site mass [Unknown]
  - Pain [Recovered/Resolved]
  - Burning sensation [Unknown]
  - Injection site inflammation [Unknown]
  - Pruritus [Recovered/Resolved]
  - Injection site erythema [Unknown]
  - Injection site warmth [Unknown]
  - Injection site pruritus [Unknown]
  - Injection site discolouration [Unknown]
  - Paraesthesia [Unknown]
  - Injection site urticaria [Unknown]
